FAERS Safety Report 23769842 (Version 3)
Quarter: 2024Q2

REPORT INFORMATION
  Report Type: Report from Study
  Country: ES (occurrence: ES)
  Receive Date: 20240422
  Receipt Date: 20240619
  Transmission Date: 20240715
  Serious: Yes (Death, Hospitalization)
  Sender: FDA-Public Use
  Company Number: ES-ABBVIE-5651935

PATIENT
  Age: 82 Year
  Sex: Male

DRUGS (5)
  1. CARBIDOPA\LEVODOPA [Suspect]
     Active Substance: CARBIDOPA\LEVODOPA
     Indication: Parkinson^s disease
     Dosage: MORNING DOSE 18 ML, CONTINUOUS DOSE 5.6 ML /H
     Route: 050
     Dates: start: 20200723
  2. CARBIDOPA\LEVODOPA [Suspect]
     Active Substance: CARBIDOPA\LEVODOPA
     Route: 050
  3. QUETIAPINE [Concomitant]
     Active Substance: QUETIAPINE
     Indication: Hallucination
     Dosage: HALF A TABLET AT DINNER
     Route: 048
     Dates: start: 20240221
  4. BETAMETHASONE DIPROPIONATE\GENTAMICIN SULFATE [Concomitant]
     Active Substance: BETAMETHASONE DIPROPIONATE\GENTAMICIN SULFATE
     Indication: Granuloma
     Route: 061
     Dates: start: 20240221, end: 20240301
  5. Iruxol Mono [Concomitant]
     Indication: Product used for unknown indication
     Route: 061
     Dates: start: 202404

REACTIONS (7)
  - Parkinson^s disease [Fatal]
  - Decubitus ulcer [Not Recovered/Not Resolved]
  - Ulcer [Not Recovered/Not Resolved]
  - Hallucination [Recovered/Resolved]
  - Granuloma [Recovered/Resolved]
  - Skin ulcer [Not Recovered/Not Resolved]
  - General physical health deterioration [Unknown]

NARRATIVE: CASE EVENT DATE: 20240201
